FAERS Safety Report 24655145 (Version 7)
Quarter: 2025Q1

REPORT INFORMATION
  Report Type: Spontaneous
  Country: US (occurrence: US)
  Receive Date: 20241123
  Receipt Date: 20250301
  Transmission Date: 20250408
  Serious: Yes (Hospitalization, Other)
  Sender: UNITED THERAPEUTICS
  Company Number: US-UNITED THERAPEUTICS-UNT-2024-036767

PATIENT
  Age: 79 Year
  Sex: Female
  Weight: 56.236 kg

DRUGS (24)
  1. TYVASO DPI [Suspect]
     Active Substance: TREPROSTINIL
     Indication: Pulmonary arterial hypertension
     Dosage: 64 ?G, QID
  2. TYVASO DPI [Suspect]
     Active Substance: TREPROSTINIL
     Dates: start: 20231110, end: 20241224
  3. TYVASO DPI [Suspect]
     Active Substance: TREPROSTINIL
     Indication: Pulmonary arterial hypertension
  4. SOTATERCEPT [Suspect]
     Active Substance: SOTATERCEPT
     Indication: Product used for unknown indication
     Dates: start: 20240731, end: 20250102
  5. REVATIO [Suspect]
     Active Substance: SILDENAFIL CITRATE
     Indication: Pulmonary arterial hypertension
     Dosage: 20 MG, TID
     Dates: start: 20230515
  6. OPSUMIT [Suspect]
     Active Substance: MACITENTAN
     Indication: Product used for unknown indication
     Dosage: 10 MG, QD
     Dates: start: 20240520
  7. COLCHICINE [Suspect]
     Active Substance: COLCHICINE
     Indication: Pericarditis
     Dosage: 0.6 MG, QD (0.5 TABLETS FOR 82 DAYS)
     Dates: start: 20250103
  8. COLCHICINE [Suspect]
     Active Substance: COLCHICINE
  9. LIPITOR [Concomitant]
     Active Substance: ATORVASTATIN CALCIUM
     Indication: Product used for unknown indication
     Dosage: 20 MG, QD
  10. NORVASC [Concomitant]
     Active Substance: AMLODIPINE BESYLATE
     Indication: Product used for unknown indication
  11. SYNTHROID [Concomitant]
     Active Substance: LEVOTHYROXINE SODIUM
     Indication: Product used for unknown indication
     Dosage: 50 ?G, QD
     Dates: start: 20210601
  12. TYLENOL EXTRA STRENGTH [Concomitant]
     Active Substance: ACETAMINOPHEN
     Indication: Product used for unknown indication
  13. METRONIDAZOLE [Concomitant]
     Active Substance: METRONIDAZOLE
     Indication: Product used for unknown indication
  14. TOPROL XL [Concomitant]
     Active Substance: METOPROLOL SUCCINATE
     Indication: Product used for unknown indication
  15. ZESTRIL [Concomitant]
     Active Substance: LISINOPRIL
     Indication: Product used for unknown indication
  16. OXYGEN [Concomitant]
     Active Substance: OXYGEN
     Indication: Product used for unknown indication
  17. OXYGEN [Concomitant]
     Active Substance: OXYGEN
  18. BUMEX [Concomitant]
     Active Substance: BUMETANIDE
     Indication: Capillary fragility
     Dosage: 1 MG, QD
     Dates: start: 20250102
  19. ELIQUIS [Concomitant]
     Active Substance: APIXABAN
     Indication: Product used for unknown indication
     Dosage: UNK, BID (TAKE 1 TABLET WITH MEALS FOR 30 DAYS)
     Dates: start: 20250123, end: 20250204
  20. CORDARONE [Concomitant]
     Active Substance: AMIODARONE HYDROCHLORIDE
     Indication: Arrhythmia
     Dosage: 200 MG, BID (TAKE 1 TABLET WITH MEALS FOR 30 DAYS)
     Dates: start: 20250102, end: 20250201
  21. XANAX [Concomitant]
     Active Substance: ALPRAZOLAM
     Indication: Product used for unknown indication
     Dosage: 0.5 MG, QD (AS NEEDED)
     Dates: start: 20211221, end: 20250204
  22. ULORIC [Concomitant]
     Active Substance: FEBUXOSTAT
     Indication: Product used for unknown indication
     Dosage: 40 MG, QD
  23. AFRIN [Concomitant]
     Active Substance: OXYMETAZOLINE HYDROCHLORIDE
     Indication: Epistaxis
     Dosage: 0.05 %, BID (AS NEEDED)
     Dates: start: 20240815
  24. SODIUM CHLORIDE [Concomitant]
     Active Substance: SODIUM CHLORIDE
     Indication: Epistaxis

REACTIONS (24)
  - Pericardial haemorrhage [Unknown]
  - Haemothorax [Unknown]
  - Pulmonary oedema [Unknown]
  - Arrhythmia [Unknown]
  - Cardiac tamponade [Unknown]
  - Pneumonia [Recovering/Resolving]
  - Dyspnoea [Unknown]
  - Pericarditis [Unknown]
  - Colitis ischaemic [Unknown]
  - Atrial fibrillation [Unknown]
  - Respiratory failure [Unknown]
  - Epistaxis [Unknown]
  - Cough [Unknown]
  - Erythema [Unknown]
  - Nasal congestion [Unknown]
  - Rhinorrhoea [Unknown]
  - Telangiectasia [Not Recovered/Not Resolved]
  - Capillary fragility [Unknown]
  - Dysphagia [Unknown]
  - Tachycardia [Unknown]
  - Fatigue [Not Recovered/Not Resolved]
  - Dizziness [Unknown]
  - Diarrhoea [Unknown]
  - Dyspnoea exertional [Unknown]

NARRATIVE: CASE EVENT DATE: 20241224
